FAERS Safety Report 19439218 (Version 1)
Quarter: 2021Q2

REPORT INFORMATION
  Report Type: Spontaneous
  Country: NL (occurrence: NL)
  Receive Date: 20210619
  Receipt Date: 20210619
  Transmission Date: 20210717
  Serious: Yes (Hospitalization)
  Sender: FDA-Public Use
  Company Number: NL-ACCORD-223629

PATIENT
  Age: 53 Year
  Sex: Female
  Weight: 88 kg

DRUGS (1)
  1. LISINOPRIL. [Suspect]
     Active Substance: LISINOPRIL
     Indication: HYPERTENSION
     Dosage: 10 MG, 1 PER DAY 1 TABLET
     Dates: start: 20210330, end: 20210404

REACTIONS (4)
  - Paraesthesia oral [Recovering/Resolving]
  - Weight increased [Unknown]
  - Abdominal distension [Recovered/Resolved]
  - Flank pain [Recovering/Resolving]

NARRATIVE: CASE EVENT DATE: 20210401
